FAERS Safety Report 16160049 (Version 1)
Quarter: 2019Q2

REPORT INFORMATION
  Report Type: Spontaneous
  Country: FR (occurrence: FR)
  Receive Date: 20190404
  Receipt Date: 20190404
  Transmission Date: 20190711
  Serious: Yes (Other)
  Sender: FDA-Public Use
  Company Number: FR-PFIZER INC-2019139210

PATIENT
  Age: 7 Year
  Sex: Male
  Weight: 25 kg

DRUGS (4)
  1. VINCRISTINE SULFATE. [Suspect]
     Active Substance: VINCRISTINE SULFATE
     Indication: EWING^S SARCOMA
     Dosage: 1.9 MG, CYCLIC
     Route: 042
     Dates: start: 20190228, end: 20190228
  2. ADRIBLASTINE [Suspect]
     Active Substance: DOXORUBICIN
     Indication: EWING^S SARCOMA
     Dosage: 36 MG, CYCLIC
     Route: 042
     Dates: start: 20190228, end: 20190301
  3. PLITICAN [Suspect]
     Active Substance: ALIZAPRIDE HYDROCHLORIDE
     Indication: PROPHYLAXIS OF NAUSEA AND VOMITING
     Dosage: 175 MG, 1X/DAY
     Route: 042
     Dates: start: 20190228, end: 20190302
  4. ENDOXAN [CYCLOPHOSPHAMIDE] [Suspect]
     Active Substance: CYCLOPHOSPHAMIDE
     Indication: EWING^S SARCOMA
     Dosage: 1150 MG, CYCLIC
     Route: 042
     Dates: start: 20190228, end: 20190228

REACTIONS (4)
  - Dystonia [Recovered/Resolved]
  - Oromandibular dystonia [Recovered/Resolved]
  - Dysarthria [Recovered/Resolved]
  - Arthralgia [Recovered/Resolved]

NARRATIVE: CASE EVENT DATE: 20190302
